FAERS Safety Report 20158644 (Version 3)
Quarter: 2022Q2

REPORT INFORMATION
  Report Type: Spontaneous
  Country: US (occurrence: None)
  Receive Date: 20211207
  Receipt Date: 20220426
  Transmission Date: 20220720
  Serious: Yes (Other)
  Sender: FDA-Public Use
  Company Number: US-ROCHE-2972676

PATIENT
  Sex: Male

DRUGS (10)
  1. ERIVEDGE [Suspect]
     Active Substance: VISMODEGIB
     Indication: Basal cell carcinoma
     Dosage: TAKE 1 CAPSULE BY MOUTH EVERY DAY
     Route: 048
     Dates: start: 202110
  2. CARVEDILOL [Concomitant]
     Active Substance: CARVEDILOL
  3. DIGOX [Concomitant]
     Active Substance: DIGOXIN
  4. FUROSEMIDE [Concomitant]
     Active Substance: FUROSEMIDE
  5. LISINOPRIL [Concomitant]
     Active Substance: LISINOPRIL
  6. NAPROXEN [Concomitant]
     Active Substance: NAPROXEN
  7. POTASSIUM CHLORIDE [Concomitant]
     Active Substance: POTASSIUM CHLORIDE
  8. SIMVASTATIN [Concomitant]
     Active Substance: SIMVASTATIN
  9. TERAZOSIN HYDROCHLORIDE [Concomitant]
     Active Substance: TERAZOSIN HYDROCHLORIDE
  10. VITAMIN B COMPLEX [Concomitant]
     Active Substance: CYANOCOBALAMIN\DEXPANTHENOL\NIACINAMIDE\PYRIDOXINE HYDROCHLORIDE\RIBOFLAVIN 5^-PHOSPHATE SODIUM\THIA

REACTIONS (5)
  - Fatigue [Unknown]
  - Fall [Unknown]
  - Arthralgia [Unknown]
  - Alopecia [Not Recovered/Not Resolved]
  - Lethargy [Not Recovered/Not Resolved]
